FAERS Safety Report 23217781 (Version 1)
Quarter: 2023Q4

REPORT INFORMATION
  Report Type: Spontaneous
  Country: CN (occurrence: CN)
  Receive Date: 20231122
  Receipt Date: 20231122
  Transmission Date: 20240109
  Serious: Yes (Hospitalization)
  Sender: FDA-Public Use
  Company Number: CN-009507513-2311CHN007512

PATIENT
  Age: 76 Year
  Sex: Male
  Weight: 61.5 kg

DRUGS (1)
  1. KEYTRUDA [Suspect]
     Active Substance: PEMBROLIZUMAB
     Indication: Lung neoplasm malignant
     Dosage: 200 MG, EVERY 3 WEEKS
     Route: 041
     Dates: start: 20230801, end: 20230828

REACTIONS (2)
  - Drug eruption [Recovering/Resolving]
  - Inappropriate schedule of product administration [Unknown]

NARRATIVE: CASE EVENT DATE: 20230828
